FAERS Safety Report 16695267 (Version 2)
Quarter: 2019Q3

REPORT INFORMATION
  Report Type: Report from Study
  Country: FR (occurrence: FR)
  Receive Date: 20190813
  Receipt Date: 20190924
  Transmission Date: 20191004
  Serious: Yes (Death, Life-Threatening, Other)
  Sender: FDA-Public Use
  Company Number: FR-ACCORD-151120

PATIENT
  Age: 7 Year
  Sex: Male

DRUGS (7)
  1. MYCOPHENOLIC ACID. [Suspect]
     Active Substance: MYCOPHENOLIC ACID
     Indication: PROPHYLAXIS AGAINST GRAFT VERSUS HOST DISEASE
     Dosage: 45 MG/KG/DAY IN 2 DIVIDED DOSES
  2. ALEMTUZUMAB [Suspect]
     Active Substance: ALEMTUZUMAB
     Indication: PRODUCT USED FOR UNKNOWN INDICATION
     Dosage: 0.4-1 MG/KG TOTAL DOSE (MEDIAN 0.5 MG/KG)
  3. RITUXIMAB. [Suspect]
     Active Substance: RITUXIMAB
     Indication: PRODUCT USED FOR UNKNOWN INDICATION
     Dosage: SEROTHERAPY, ON D-12
  4. CICLOSPORIN [Suspect]
     Active Substance: CYCLOSPORINE
     Indication: PROPHYLAXIS AGAINST GRAFT VERSUS HOST DISEASE
     Dosage: STARTED ON D5
  5. FLUDARABINE/FLUDARABINE PHOSPHATE [Suspect]
     Active Substance: FLUDARABINE PHOSPHATE
     Indication: BONE MARROW CONDITIONING REGIMEN
     Dosage: CONDITIONING REGIMEN/40 MG/M2 DAILY
  6. IMMUNOGLOBULIN HUMAN NORMAL [Concomitant]
     Active Substance: HUMAN IMMUNOGLOBULIN G
     Indication: SUPPORTIVE CARE
     Route: 042
  7. CYCLOPHOSPHAMIDE/CYCLOPHOSPHAMIDE MONOHYDRATE [Suspect]
     Active Substance: CYCLOPHOSPHAMIDE
     Indication: BONE MARROW CONDITIONING REGIMEN
     Dosage: CONDITIONING REGIMEN 14.5 MG/KG DAILY, ON DAYS -3 AND -2

REACTIONS (6)
  - Thrombotic microangiopathy [Fatal]
  - Cystitis viral [Unknown]
  - Multiple organ dysfunction syndrome [Fatal]
  - Renal failure [Fatal]
  - Cytomegalovirus infection [Unknown]
  - BK virus infection [Unknown]
